FAERS Safety Report 6369912-6 (Version None)
Quarter: 2009Q3

REPORT INFORMATION
  Report Type: 
  Country: None (occurrence: None)
  Receive Date: 20090923
  Receipt Date: 20070614
  Transmission Date: 20100115
  Serious: Yes (Hospitalization)
  Sender: FDA-Public Use
  Company Number: US-ASTRAZENECA-2006UW11143

PATIENT
  Age: 34 Year
  Sex: Male
  Weight: 74.8 kg

DRUGS (14)
  1. SEROQUEL [Suspect]
     Indication: DEPRESSION
     Route: 048
     Dates: start: 19990101, end: 20030101
  2. SEROQUEL [Suspect]
     Indication: SCHIZOPHRENIA
     Route: 048
     Dates: start: 19990101, end: 20030101
  3. SEROQUEL [Suspect]
     Dosage: 25-800 MG
     Route: 048
     Dates: start: 20000101
  4. SEROQUEL [Suspect]
     Dosage: 25-800 MG
     Route: 048
     Dates: start: 20000101
  5. ZYPREXA [Suspect]
     Dosage: 10-40 MG
     Dates: start: 20000101
  6. HALDOL [Concomitant]
     Dosage: 5-45 MG
     Route: 048
     Dates: start: 20001218
  7. DILANTIN [Concomitant]
     Indication: CONVULSION
     Route: 048
     Dates: start: 20001218
  8. REMERON [Concomitant]
     Route: 048
     Dates: start: 20010211
  9. LITHIUM CARBONATE [Concomitant]
     Dosage: 300-1200 MG
     Route: 048
     Dates: start: 20010211
  10. COGENTIN [Concomitant]
     Dosage: 1 MG BID, 2 MG QHS
     Route: 048
     Dates: start: 20010203
  11. ARTANE [Concomitant]
     Dates: start: 20001218
  12. PROZAC [Concomitant]
     Route: 048
     Dates: start: 20001218
  13. DEPAKOTE [Concomitant]
     Dosage: 750-1250 MG
     Route: 048
     Dates: start: 20010918
  14. RISPERDAL [Concomitant]
     Dosage: 6-10 MG
     Dates: start: 20010203

REACTIONS (1)
  - PANCREATITIS [None]
